FAERS Safety Report 6420854-7 (Version None)
Quarter: 2009Q4

REPORT INFORMATION
  Report Type: 
  Country: None (occurrence: None)
  Receive Date: 20091030
  Receipt Date: 20091019
  Transmission Date: 20100525
  Serious: Yes (Hospitalization)
  Sender: FDA-Public Use
  Company Number: DE-RANBAXY-2009RR-22790

PATIENT
  Age: 20 Year
  Sex: Female
  Weight: 55 kg

DRUGS (5)
  1. GABAPENTIN [Suspect]
     Indication: PAIN
     Dosage: 300 MG, QID
     Route: 048
     Dates: start: 20081205, end: 20081217
  2. CEFADROXIL [Concomitant]
     Indication: LYME DISEASE
     Dosage: 500 MG, BID
     Route: 048
     Dates: start: 20081128
  3. PERENTEROL [Concomitant]
     Indication: DIARRHOEA
     Dosage: 50 MG, Q4H
     Route: 048
     Dates: start: 20081116
  4. GABAPENTIN [Concomitant]
     Dosage: 100 MG, TID
     Route: 048
     Dates: start: 20081102
  5. GABAPENTIN [Concomitant]
     Dosage: 300 MG, TID
     Route: 048

REACTIONS (1)
  - NARCOLEPSY [None]
